FAERS Safety Report 8121691-8 (Version None)
Quarter: 2012Q1

REPORT INFORMATION
  Report Type: 
  Country: None (occurrence: None)
  Receive Date: 20120207
  Receipt Date: 20120207
  Transmission Date: 20120608
  Serious: Yes (Life-Threatening, Disabling, Other)
  Sender: FDA-Public Use
  Company Number: None

PATIENT
  Sex: Male
  Weight: 68.4932 kg

DRUGS (4)
  1. SEROQUEL [Suspect]
     Indication: PARANOIA
     Dosage: 300 MG 1 TAB BEDTIME
     Dates: start: 20101204
  2. HYDROCHLORTHIAZIDE [Concomitant]
  3. SEROQUEL [Suspect]
     Indication: PARANOIA
     Dosage: 100 MG 1 TAB BEDTIME
     Dates: start: 20111017
  4. ATIVAN [Concomitant]

REACTIONS (5)
  - NERVOUSNESS [None]
  - POOR QUALITY SLEEP [None]
  - EMOTIONAL DISORDER [None]
  - NERVOUS SYSTEM DISORDER [None]
  - MEMORY IMPAIRMENT [None]
